FAERS Safety Report 8603501 (Version 4)
Quarter: 2012Q4

REPORT INFORMATION
  Report Type: 
  Country: JP (occurrence: JP)
  Receive Date: 20120607
  Receipt Date: 20121220
  Transmission Date: 20130627
  Serious: Yes (Other)
  Sender: FDA-Public Use
  Company Number: PHHY2012JP048192

PATIENT
  Age: 64 Year
  Sex: Female

DRUGS (9)
  1. FTY 720 [Suspect]
     Indication: RELAPSING-REMITTING MULTIPLE SCLEROSIS
     Dosage: 0.5 mg, UNK
     Route: 048
     Dates: start: 20120530, end: 20120829
  2. VERAPAMIL [Suspect]
     Dosage: 120 mg, daily
     Dates: start: 20120530
  3. PRAVASTATIN [Concomitant]
     Indication: HYPERLIPIDAEMIA
     Dosage: 10 mg, daily
     Route: 048
  4. RANITIDINE [Concomitant]
     Dosage: 300 mg, daily
     Route: 048
  5. SOLIFENACIN SUCCINATE [Concomitant]
     Dosage: 5 mg, daily
     Route: 048
  6. CLONAZEPAM [Concomitant]
     Dosage: 0.5 mg, daily
     Route: 048
  7. MENATETRENONE [Concomitant]
     Dosage: 45 mg, daily
     Route: 048
  8. MECOBALAMIN [Concomitant]
     Dosage: 1500 ug, daily
  9. MAGNESIUM OXIDE [Concomitant]
     Dosage: 990 mg, daily
     Route: 048

REACTIONS (8)
  - Electrocardiogram change [Recovered/Resolved]
  - Electrocardiogram low voltage [Recovered/Resolved]
  - Electrocardiogram T wave inversion [Recovered/Resolved]
  - Bradycardia [Recovered/Resolved]
  - Lymphocyte count decreased [Not Recovered/Not Resolved]
  - Macular oedema [Recovered/Resolved]
  - Hypertension [Recovered/Resolved]
  - White blood cell count decreased [Unknown]
